FAERS Safety Report 7063469-2 (Version None)
Quarter: 2010Q4

REPORT INFORMATION
  Report Type: 
  Country: None (occurrence: None)
  Receive Date: 20101026
  Receipt Date: 20100415
  Transmission Date: 20110411
  Serious: No
  Sender: FDA-Public Use
  Company Number: US-ABBOTT-10P-163-0639515-00

PATIENT
  Sex: Female
  Weight: 83.082 kg

DRUGS (1)
  1. LUPRON DEPOT [Suspect]
     Indication: UTERINE LEIOMYOMA
     Dates: end: 20100406

REACTIONS (4)
  - HOT FLUSH [None]
  - IRRITABILITY [None]
  - LIBIDO INCREASED [None]
  - MOOD ALTERED [None]
